FAERS Safety Report 20748826 (Version 3)
Quarter: 2022Q3

REPORT INFORMATION
  Report Type: Spontaneous
  Country: JP (occurrence: JP)
  Receive Date: 20220426
  Receipt Date: 20220701
  Transmission Date: 20221027
  Serious: Yes (Hospitalization, Disabling, Other)
  Sender: FDA-Public Use
  Company Number: JP-AMGEN-JPNSP2022070777

PATIENT
  Age: 74 Year
  Sex: Female

DRUGS (3)
  1. EVENITY [Suspect]
     Active Substance: ROMOSOZUMAB-AQQG
     Indication: Osteoporosis
     Dosage: 210 MILLIGRAM, QMO
     Route: 058
     Dates: start: 20210106, end: 20211201
  2. DAPRODUSTAT [Suspect]
     Active Substance: DAPRODUSTAT
     Indication: Nephrogenic anaemia
     Dosage: 4 MILLIGRAM(INCREASED TO SIX MG AND REDUCED ON AN AS-NEEDED BASIS)
     Route: 065
     Dates: start: 20210707
  3. Arb [Concomitant]
     Indication: Hypertension
     Dosage: UNK

REACTIONS (2)
  - Cerebral infarction [Recovered/Resolved with Sequelae]
  - Retinal haemorrhage [Unknown]

NARRATIVE: CASE EVENT DATE: 20210101
